FAERS Safety Report 22244108 (Version 2)
Quarter: 2023Q2

REPORT INFORMATION
  Report Type: Report from Study
  Country: US (occurrence: US)
  Receive Date: 20230424
  Receipt Date: 20230518
  Transmission Date: 20230721
  Serious: Yes (Other)
  Sender: FDA-Public Use
  Company Number: US-ABBVIE-4735880

PATIENT
  Sex: Male

DRUGS (1)
  1. HUMIRA [Suspect]
     Active Substance: ADALIMUMAB
     Indication: Rheumatoid arthritis
     Dosage: STRENGTH: 40 MILLIGRAM (CITRATE FREE)
     Route: 058
     Dates: start: 20210430

REACTIONS (3)
  - Tendon injury [Recovering/Resolving]
  - Urticaria [Not Recovered/Not Resolved]
  - Procedural pain [Unknown]
